FAERS Safety Report 9462058 (Version 1)
Quarter: 2013Q3

REPORT INFORMATION
  Report Type: Spontaneous
  Country: FR (occurrence: FR)
  Receive Date: 20130816
  Receipt Date: 20130816
  Transmission Date: 20140515
  Serious: Yes (Death)
  Sender: FDA-Public Use
  Company Number: FR-PFIZER INC-2013235467

PATIENT
  Age: 82 Year
  Sex: Female

DRUGS (19)
  1. EUPANTOL [Suspect]
     Dosage: 40 MG, 1X/DAY
     Route: 042
     Dates: start: 20130613
  2. EUPANTOL [Suspect]
     Dosage: 200 MG, UNK, (200 MG,DOSE INCREASED FOR 48 HRS)
     Route: 042
  3. EUPANTOL [Suspect]
     Dosage: 80 MG UNK, (80 MG,DOSE DECREASED)
     Route: 042
     Dates: end: 20130620
  4. HUMALOG [Concomitant]
     Dosage: 2 DF, 1X/DAY
     Route: 058
     Dates: start: 20121220
  5. AMOXI-CLAVULANICO [Concomitant]
     Indication: PULMONARY SEPSIS
     Dosage: UNK
     Route: 042
  6. ACTRAPID [Concomitant]
     Indication: DIABETES MELLITUS
     Dosage: ACCORDING DEXTRO 8 UI
     Route: 058
     Dates: start: 201301
  7. LASILIX [Concomitant]
     Dosage: 40 MG, 1X/DAY
     Route: 048
     Dates: start: 20130610
  8. TRANSIPEG [Concomitant]
     Dosage: UNK
     Route: 048
     Dates: start: 20130608
  9. SPIRIVA [Concomitant]
     Dosage: 10 UG, 1X/DAY
  10. SIMVASTATIN [Concomitant]
     Dosage: 20 MG, 1X/DAY
  11. ALLOPURINOL [Concomitant]
     Dosage: 100 MG, 1X/DAY
  12. KARDEGIC [Concomitant]
     Dosage: 75 MG, 1X/DAY
  13. TARDYFERON [Concomitant]
     Dosage: 80 MG, 1X/DAY
  14. NOVONORM [Concomitant]
     Dosage: 3 MG, 1X/DAY
  15. EBIXA [Concomitant]
     Dosage: 10 MG, 1X/DAY
  16. DOLIPRANE [Concomitant]
     Dosage: 500 MG, AS NEEDED
  17. UVEDOSE [Concomitant]
     Dosage: 1 DF, EVERY 3 MONTHS
  18. ENALAPRIL [Concomitant]
     Dosage: 10 MG, UNK
  19. ESIDEX [Concomitant]
     Dosage: 12.5 MG, 1X/DAY

REACTIONS (1)
  - Thrombocytopenia [Fatal]
